FAERS Safety Report 8905804 (Version 3)
Quarter: 2012Q4

REPORT INFORMATION
  Report Type: 
  Country: JP (occurrence: JP)
  Receive Date: 20121113
  Receipt Date: 20121214
  Transmission Date: 20130627
  Serious: Yes (Other)
  Sender: FDA-Public Use
  Company Number: JP-PFIZER INC-2012279979

PATIENT
  Age: 56 Year
  Sex: Male

DRUGS (4)
  1. DALACIN [Suspect]
     Dosage: UNK
     Route: 048
  2. ADALAT CR [Suspect]
  3. FLOMOX [Concomitant]
     Dosage: UNK
  4. MAINTATE [Concomitant]
     Dosage: UNK

REACTIONS (1)
  - Pneumonia [Recovered/Resolved]
